FAERS Safety Report 9555317 (Version 1)
Quarter: 2013Q3

REPORT INFORMATION
  Report Type: Spontaneous
  Country: US (occurrence: None)
  Receive Date: 20130816
  Receipt Date: 20130816
  Transmission Date: 20140515
  Serious: No
  Sender: FDA-Public Use
  Company Number: US-011713

PATIENT
  Age: 59 Year
  Sex: Male
  Weight: 70.76 kg

DRUGS (7)
  1. PICO-SALAX (NOT SPECIFIED) [Suspect]
     Indication: BOWEL PREPARATION
     Dosage: FIRST PACKET @ 1PM WITH 5 GLASSES OF WATER  TO CONTINUING??
     Dates: start: 20130509
  2. TRICOR /00090101/ [Concomitant]
  3. BYSTOLIC [Concomitant]
  4. AMLODIPINE [Concomitant]
  5. PRIMIDONE [Concomitant]
  6. ASPIRIN [Concomitant]
  7. MELOXICAM [Concomitant]

REACTIONS (2)
  - Nausea [None]
  - Abdominal distension [None]
